FAERS Safety Report 9432291 (Version 1)
Quarter: 2013Q3

REPORT INFORMATION
  Report Type: Spontaneous
  Country: US (occurrence: None)
  Receive Date: 20130729
  Receipt Date: 20130729
  Transmission Date: 20140515
  Serious: Yes (Hospitalization)
  Sender: FDA-Public Use
  Company Number: UTC-035595

PATIENT
  Age: 58 Year
  Sex: Female
  Weight: 61.32 kg

DRUGS (4)
  1. REMODULIN (10 MILLIGRAM/MILLILITERS, INJECTION FOR INFUSION) (TREPROSTINIL SODIUM) [Suspect]
     Indication: PULMONARY HYPERTENSION
     Dosage: 121.68 UG/KG (0.0845 UG/KG, 1 IN 1 MIN), SUBCUTANEOUS
     Dates: start: 20130307
  2. REVATIO (SILDENAFIL CITRATE) (UNKNOWN) (SILDENAFIL) [Concomitant]
  3. LETAIRIS (AMBRISENTAN) (TABLETS) [Concomitant]
  4. WARFARIN [Concomitant]

REACTIONS (4)
  - Transient ischaemic attack [None]
  - Hypotension [None]
  - Accidental overdose [None]
  - Incorrect drug administration rate [None]
